FAERS Safety Report 9350972 (Version 1)
Quarter: 2013Q2

REPORT INFORMATION
  Report Type: Spontaneous
  Country: US (occurrence: US)
  Receive Date: 20130617
  Receipt Date: 20130617
  Transmission Date: 20140414
  Serious: Yes (Life-Threatening, Hospitalization)
  Sender: FDA-Public Use
  Company Number: US-PERRIGO-13US006121

PATIENT
  Age: 37 Year
  Sex: Female

DRUGS (1)
  1. ACETAMINOPHEN 650MG ER 544 [Suspect]
     Indication: HEADACHE
     Dosage: 8 TABLETS
     Route: 048

REACTIONS (11)
  - Toxicity to various agents [Recovered/Resolved]
  - Hepatic encephalopathy [Recovered/Resolved]
  - Renal failure [Recovered/Resolved]
  - Coagulopathy [Recovered/Resolved]
  - Hyperbilirubinaemia [Unknown]
  - Alanine aminotransferase increased [Recovering/Resolving]
  - Aspartate aminotransferase increased [Recovering/Resolving]
  - Blood creatinine increased [Recovered/Resolved]
  - Confusional state [Recovered/Resolved]
  - Extensor plantar response [Recovered/Resolved]
  - Clonus [Recovered/Resolved]
